FAERS Safety Report 6069660-6 (Version None)
Quarter: 2009Q1

REPORT INFORMATION
  Report Type: 
  Country: None (occurrence: None)
  Receive Date: 20090209
  Receipt Date: 20090202
  Transmission Date: 20090719
  Serious: Yes (Hospitalization)
  Sender: FDA-Public Use
  Company Number: US-JNJFOC-20090200980

PATIENT
  Sex: Male
  Weight: 95.26 kg

DRUGS (5)
  1. FENTANYL TRANSDERMAL SYSTEM [Suspect]
     Indication: BACK PAIN
     Route: 062
  2. FENTANYL TRANSDERMAL SYSTEM [Suspect]
     Indication: SPONDYLOLISTHESIS
     Route: 062
  3. NORCO [Concomitant]
     Indication: BREAKTHROUGH PAIN
     Dosage: 7.5MG-325MG AS NEEDED
     Route: 048
  4. PROTONIX [Concomitant]
     Indication: ULCER
     Route: 048
  5. FLEXERIL [Concomitant]
     Indication: PAIN
     Dosage: 10 MG AS NEEDED
     Route: 048

REACTIONS (7)
  - FEELING ABNORMAL [None]
  - HYPERHIDROSIS [None]
  - INAPPROPRIATE SCHEDULE OF DRUG ADMINISTRATION [None]
  - MALAISE [None]
  - NAUSEA [None]
  - PRODUCT QUALITY ISSUE [None]
  - SURGERY [None]
